FAERS Safety Report 6636212-6 (Version None)
Quarter: 2010Q1

REPORT INFORMATION
  Report Type: 
  Country: None (occurrence: None)
  Receive Date: 20100316
  Receipt Date: 20100305
  Transmission Date: 20100710
  Serious: Yes (Death, Other)
  Sender: FDA-Public Use
  Company Number: AU-PFIZER INC-2010029057

PATIENT
  Sex: Female

DRUGS (2)
  1. PROSTIN E2 [Suspect]
     Dosage: UNK
     Dates: start: 20040101, end: 20040101
  2. SYNTOCINON [Suspect]
     Dosage: UNK
     Dates: start: 20040101, end: 20040101

REACTIONS (3)
  - ANAPHYLACTOID SYNDROME OF PREGNANCY [None]
  - STILLBIRTH [None]
  - UTERINE HYPERTONUS [None]
